FAERS Safety Report 17476228 (Version 1)
Quarter: 2020Q1

REPORT INFORMATION
  Report Type: Report from Study
  Country: GB (occurrence: GB)
  Receive Date: 20200228
  Receipt Date: 20200228
  Transmission Date: 20200409
  Serious: Yes (Death, Hospitalization)
  Sender: FDA-Public Use
  Company Number: GB-JNJFOC-20190935320

PATIENT
  Age: 81 Year
  Sex: Male
  Weight: 112 kg

DRUGS (18)
  1. DOUBLEBASE [Concomitant]
     Active Substance: ISOPROPYL MYRISTATE\PARAFFIN
     Route: 065
     Dates: start: 20101214
  2. FLUTICASONE PROPIONATE. [Concomitant]
     Active Substance: FLUTICASONE PROPIONATE
     Route: 065
     Dates: start: 20111018
  3. CO-AMOXICLAV                       /02043401/ [Concomitant]
     Active Substance: AMOXICILLIN\CLAVULANIC ACID
     Route: 065
     Dates: start: 20180314, end: 20180321
  4. OXYCODONE [Concomitant]
     Active Substance: OXYCODONE
     Route: 065
     Dates: start: 20190611
  5. TAZOCIN [Concomitant]
     Active Substance: PIPERACILLIN SODIUM\TAZOBACTAM SODIUM
     Route: 065
     Dates: start: 20190805, end: 20190809
  6. IBULEVE [Concomitant]
     Route: 065
     Dates: start: 20190611
  7. GENTAMICIN. [Concomitant]
     Active Substance: GENTAMICIN
     Route: 065
     Dates: start: 20190809, end: 20190812
  8. DEXAMETHASONE. [Concomitant]
     Active Substance: DEXAMETHASONE
     Route: 065
     Dates: start: 20190420, end: 20190427
  9. TEICOPLANIN [Concomitant]
     Active Substance: TEICOPLANIN
     Route: 065
     Dates: start: 20190807, end: 20190812
  10. DIPROSALIC [Concomitant]
     Active Substance: BETAMETHASONE DIPROPIONATE
     Route: 065
     Dates: start: 20111115
  11. SYNALAR [Concomitant]
     Active Substance: FLUOCINOLONE ACETONIDE
     Route: 065
     Dates: start: 20101214
  12. FLUTICASONE. [Concomitant]
     Active Substance: FLUTICASONE
     Route: 065
     Dates: start: 20100218
  13. FUCIBET [Concomitant]
     Route: 065
     Dates: start: 20101116
  14. DOVONEX [Concomitant]
     Active Substance: CALCIPOTRIENE
     Route: 065
     Dates: start: 20101229
  15. HYDROXYCARBAMIDE [Concomitant]
     Active Substance: HYDROXYUREA
     Route: 065
     Dates: start: 20111115
  16. MEROPENEM. [Concomitant]
     Active Substance: MEROPENEM
     Route: 065
     Dates: start: 20190809, end: 20190812
  17. STELARA [Suspect]
     Active Substance: USTEKINUMAB
     Indication: PSORIASIS
     Route: 058
     Dates: start: 20130930, end: 20190625
  18. DERMOVATE [Concomitant]
     Active Substance: CLOBETASOL
     Route: 065
     Dates: start: 20120424

REACTIONS (2)
  - Myocardial infarction [Fatal]
  - Lower respiratory tract infection [Fatal]

NARRATIVE: CASE EVENT DATE: 201907
